FAERS Safety Report 6733326-7 (Version None)
Quarter: 2010Q2

REPORT INFORMATION
  Report Type: 
  Country: None (occurrence: None)
  Receive Date: 20100520
  Receipt Date: 20100507
  Transmission Date: 20101027
  Serious: Yes (Other)
  Sender: FDA-Public Use
  Company Number: JP-PFIZER INC-2010055334

PATIENT
  Age: 25 Year
  Sex: Female

DRUGS (5)
  1. SALAZOPYRIN [Suspect]
     Indication: COLITIS ULCERATIVE
     Dosage: 1000 MG DAILY
     Route: 048
  2. TAKEPRON [Suspect]
     Dosage: 30 MG, DAILY
     Route: 048
  3. WARFARIN POTASSIUM [Suspect]
     Dosage: 2 MG, DAILY
     Route: 048
  4. CALONAL [Suspect]
     Dosage: 200 MG, DAILY
     Route: 048
  5. HOKUNALIN [Suspect]
     Dosage: 1 MG, DAILY
     Route: 048

REACTIONS (2)
  - DYSPNOEA [None]
  - SUFFOCATION FEELING [None]
